FAERS Safety Report 5882595-4 (Version None)
Quarter: 2008Q3

REPORT INFORMATION
  Report Type: 
  Country: None (occurrence: None)
  Receive Date: 20080913
  Receipt Date: 20080804
  Transmission Date: 20090109
  Serious: No
  Sender: FDA-Public Use
  Company Number: US-ABBOTT-08P-163-0468997-00

PATIENT
  Sex: Female

DRUGS (4)
  1. HUMIRA [Suspect]
     Indication: RHEUMATOID ARTHRITIS
     Dosage: ONE PEN EVERY OTHER WEEK
     Route: 058
     Dates: start: 20080601
  2. ETANERCEPT [Concomitant]
     Indication: RHEUMATOID ARTHRITIS
     Dosage: FOUR OR FIVE YEARS
     Route: 050
  3. METHOTREXATE [Concomitant]
     Indication: RHEUMATOID ARTHRITIS
     Dosage: FOUR OR FIVE YEARS
     Route: 048
  4. RANITIDINE [Concomitant]
     Indication: GASTRIC DISORDER
     Route: 048

REACTIONS (2)
  - CONTUSION [None]
  - INJECTION SITE PAIN [None]
